FAERS Safety Report 18207113 (Version 2)
Quarter: 2021Q1

REPORT INFORMATION
  Report Type: Spontaneous
  Country: US (occurrence: US)
  Receive Date: 20200828
  Receipt Date: 20210324
  Transmission Date: 20210419
  Serious: Yes (Death)
  Sender: FDA-Public Use
  Company Number: US-PFIZER INC-2020331208

PATIENT

DRUGS (1)
  1. MEPIVACAINE HCL [Suspect]
     Active Substance: MEPIVACAINE HYDROCHLORIDE
     Indication: LOCAL ANAESTHESIA
     Dosage: UNK

REACTIONS (3)
  - Toxicity to various agents [Fatal]
  - Cardiopulmonary failure [Fatal]
  - Off label use [Unknown]
